FAERS Safety Report 13192830 (Version 1)
Quarter: 2017Q1

REPORT INFORMATION
  Report Type: Spontaneous
  Country: CA (occurrence: CA)
  Receive Date: 20170207
  Receipt Date: 20170207
  Transmission Date: 20170428
  Serious: Yes (Hospitalization)
  Sender: FDA-Public Use
  Company Number: CA-BAYER-2017-022910

PATIENT
  Sex: Female
  Weight: 96.5 kg

DRUGS (4)
  1. TYLENOL [Suspect]
     Active Substance: ACETAMINOPHEN
     Dosage: 325 MG, PRN
  2. ADVIL [Suspect]
     Active Substance: IBUPROFEN
     Dosage: 200 MG, PRN
  3. CELEBREX [Concomitant]
     Active Substance: CELECOXIB
     Dosage: UNK
     Dates: end: 2012
  4. ALEVE [Suspect]
     Active Substance: NAPROXEN SODIUM
     Dosage: UNK
     Dates: start: 201202

REACTIONS (1)
  - Nausea [None]

NARRATIVE: CASE EVENT DATE: 2012
